FAERS Safety Report 16358486 (Version 1)
Quarter: 2019Q2

REPORT INFORMATION
  Report Type: Spontaneous
  Country: AT (occurrence: AT)
  Receive Date: 20190527
  Receipt Date: 20190527
  Transmission Date: 20190711
  Serious: Yes (Hospitalization, Other)
  Sender: FDA-Public Use
  Company Number: AT-UCBSA-2019021190

PATIENT
  Sex: Male

DRUGS (10)
  1. LEVETIRACETAM. [Suspect]
     Active Substance: LEVETIRACETAM
     Indication: OFF LABEL USE
  2. NEUROBION [Concomitant]
     Active Substance: CYANOCOBALAMIN\PYRIDOXINE\THIAMINE
     Indication: PRODUCT USED FOR UNKNOWN INDICATION
     Dosage: UNK
     Route: 065
  3. ETOPOSID EBEWE [Suspect]
     Active Substance: ETOPOSIDE
     Indication: CHOROID PLEXUS CARCINOMA
     Dosage: UNK
  4. FORTECORTIN [Suspect]
     Active Substance: DEXAMETHASONE
     Indication: PRODUCT USED FOR UNKNOWN INDICATION
     Dosage: UNK
  5. CARBOPLATIN ACCORD [Suspect]
     Active Substance: CARBOPLATIN
     Indication: CHOROID PLEXUS CARCINOMA
     Dosage: UNK
  6. ONDANSAN [Concomitant]
     Indication: PRODUCT USED FOR UNKNOWN INDICATION
     Dosage: UNK
  7. LEVETIRACETAM. [Suspect]
     Active Substance: LEVETIRACETAM
     Indication: CHOROID PLEXUS CARCINOMA
     Dosage: 500 MILLIGRAM, 2X/DAY (BID)
  8. MOLAXOLE [Concomitant]
     Active Substance: POLYETHYLENE GLYCOL 3350\POTASSIUM CHLORIDE\SODIUM BICARBONATE\SODIUM CHLORIDE
     Indication: PRODUCT USED FOR UNKNOWN INDICATION
     Dosage: UNK
     Route: 065
  9. VEPESID [Suspect]
     Active Substance: ETOPOSIDE
     Indication: CHOROID PLEXUS CARCINOMA
     Dosage: UNK
  10. AFINITOR [Suspect]
     Active Substance: EVEROLIMUS
     Indication: CHOROID PLEXUS CARCINOMA
     Dosage: UNK

REACTIONS (12)
  - Malignant neoplasm progression [Unknown]
  - Therapeutic response decreased [Unknown]
  - Cerebrospinal fluid leakage [Unknown]
  - Choroid plexus carcinoma [Unknown]
  - Metastases to meninges [Unknown]
  - Constipation [Unknown]
  - Epilepsy [Unknown]
  - Metastases to spine [Unknown]
  - Vomiting [Unknown]
  - Off label use [Unknown]
  - Leukopenia [Unknown]
  - Product use in unapproved indication [Unknown]
